FAERS Safety Report 11065598 (Version 3)
Quarter: 2015Q3

REPORT INFORMATION
  Report Type: Spontaneous
  Country: US (occurrence: US)
  Receive Date: 20150425
  Receipt Date: 20150803
  Transmission Date: 20151125
  Serious: No
  Sender: FDA-Public Use
  Company Number: US-JNJFOC-20150400614

PATIENT
  Age: 37 Year
  Sex: Male

DRUGS (2)
  1. PREZCOBIX [Suspect]
     Active Substance: COBICISTAT\DARUNAVIR ETHANOLATE
     Indication: HIV INFECTION
     Dosage: 800 MG/150 MG
     Route: 048
     Dates: start: 201503
  2. INTELENCE [Suspect]
     Active Substance: ETRAVIRINE
     Indication: HIV INFECTION
     Route: 048
     Dates: start: 201303

REACTIONS (1)
  - Drug administration error [Not Recovered/Not Resolved]

NARRATIVE: CASE EVENT DATE: 201503
